FAERS Safety Report 4646169-5 (Version None)
Quarter: 2005Q2

REPORT INFORMATION
  Report Type: 
  Country: None (occurrence: None)
  Receive Date: 20050422
  Receipt Date: 20050422
  Transmission Date: 20051028
  Serious: Yes (Disabling)
  Sender: FDA-Public Use
  Company Number: None

PATIENT
  Age: 70 Year
  Sex: Female
  Weight: 81.6475 kg

DRUGS (1)
  1. BEXTRA [Suspect]
     Indication: PAIN IN EXTREMITY
     Dosage: 10 MG ONCE DAILY ORALLY
     Route: 048
     Dates: start: 20040101, end: 20040501

REACTIONS (6)
  - CUTANEOUS LUPUS ERYTHEMATOSUS [None]
  - DRY SKIN [None]
  - ERYTHEMA [None]
  - PRURITUS [None]
  - SCRATCH [None]
  - SKIN REACTION [None]
